FAERS Safety Report 9964622 (Version 1)
Quarter: 2014Q1

REPORT INFORMATION
  Report Type: Spontaneous
  Country: US (occurrence: US)
  Receive Date: 20140305
  Receipt Date: 20140305
  Transmission Date: 20141002
  Serious: No
  Sender: FDA-Public Use
  Company Number: US-AMGEN-USASP2013084844

PATIENT
  Age: 53 Year
  Sex: Female
  Weight: 45.35 kg

DRUGS (3)
  1. ENBREL [Suspect]
     Indication: PRODUCT USED FOR UNKNOWN INDICATION
     Dosage: 50 MG, QWK
     Route: 058
  2. NEURONTIN [Concomitant]
     Dosage: 100 MG, UNK
     Route: 048
  3. PREMARIN [Concomitant]
     Dosage: 25 MG, UNK
     Route: 048

REACTIONS (3)
  - Headache [Recovered/Resolved]
  - Dyspepsia [Recovered/Resolved]
  - Chest pain [Recovered/Resolved]
